FAERS Safety Report 4549849-5 (Version None)
Quarter: 2004Q4

REPORT INFORMATION
  Report Type: 
  Country: None (occurrence: None)
  Receive Date: 20041227
  Receipt Date: 20041103
  Transmission Date: 20050328
  Serious: No
  Sender: FDA-Public Use
  Company Number: 04P-163-0279708-00

PATIENT
  Age: 54 Year
  Sex: Female
  Weight: 61.6892 kg

DRUGS (6)
  1. HUMIRA [Suspect]
     Indication: RHEUMATOID ARTHRITIS
     Dosage: 40 MG, 1 IN 2 WK, SUBCUTANEOUS
     Route: 058
     Dates: start: 20030101
  2. METHOTREXATE SODIUM [Concomitant]
  3. LEVOTHYROXINE SODIUM [Concomitant]
  4. CALCIUM GLUCONATE [Concomitant]
  5. MULTI-VITAMINS [Concomitant]
  6. FOLIC ACID [Concomitant]

REACTIONS (1)
  - RASH ERYTHEMATOUS [None]
